FAERS Safety Report 6655795-3 (Version None)
Quarter: 2010Q1

REPORT INFORMATION
  Report Type: 
  Country: None (occurrence: None)
  Receive Date: 20100329
  Receipt Date: 20100318
  Transmission Date: 20100710
  Serious: Yes (Hospitalization)
  Sender: FDA-Public Use
  Company Number: HK-ROCHE-688268

PATIENT
  Sex: Female
  Weight: 44.3 kg

DRUGS (3)
  1. TRASTUZUMAB [Suspect]
     Dosage: FORM:FLUID, LAST DOSE PRIOR TO SAE ON 25 FEBRUARY 2010.  RECEIVED LOADING DOSE.
     Route: 042
     Dates: start: 20100225
  2. PERTUZUMAB [Suspect]
     Dosage: FORM: FLUID, LAST DOSE PRIOR TO SAE ON 24 FEBRUARY 2010.
     Route: 042
     Dates: start: 20100224
  3. DOCETAXEL [Suspect]
     Dosage: FORM: FLUID, LAST DOSE PRIOR TO SAE ON 25 FEBRUARY 2010.
     Route: 042
     Dates: start: 20100225

REACTIONS (1)
  - LOWER RESPIRATORY TRACT INFECTION [None]
